FAERS Safety Report 25287989 (Version 2)
Quarter: 2025Q3

REPORT INFORMATION
  Report Type: Spontaneous
  Country: JP (occurrence: JP)
  Receive Date: 20250509
  Receipt Date: 20250708
  Transmission Date: 20251020
  Serious: Yes (Life-Threatening, Other)
  Sender: ABBVIE
  Company Number: JP-JNJFOC-20250508555

PATIENT

DRUGS (1)
  1. IMBRUVICA [Suspect]
     Active Substance: IBRUTINIB
     Indication: Waldenstrom^s macroglobulinaemia
     Route: 048
     Dates: end: 20250409

REACTIONS (2)
  - Aplastic anaemia [Not Recovered/Not Resolved]
  - Paroxysmal nocturnal haemoglobinuria [Unknown]
